FAERS Safety Report 4947470-8 (Version None)
Quarter: 2006Q1

REPORT INFORMATION
  Report Type: 
  Country: None (occurrence: None)
  Receive Date: 20060313
  Receipt Date: 20060228
  Transmission Date: 20060701
  Serious: Yes (Other)
  Sender: FDA-Public Use
  Company Number: 2006032995

PATIENT
  Sex: Male

DRUGS (2)
  1. ZOLOFT [Suspect]
     Indication: ILL-DEFINED DISORDER
     Dosage: PLACENTAL
     Route: 064
     Dates: start: 20040501
  2. MORPHINE [Suspect]
     Indication: ILL-DEFINED DISORDER
     Dosage: PLACENTAL
     Route: 064

REACTIONS (11)
  - CAESAREAN SECTION [None]
  - DRUG DEPENDENCE [None]
  - DRUG EXPOSURE DURING PREGNANCY [None]
  - HYPOTHERMIA NEONATAL [None]
  - NEONATAL COMPLICATIONS OF SUBSTANCE ABUSE [None]
  - NEONATAL DISORDER [None]
  - OBSTETRIC PROCEDURE COMPLICATION [None]
  - PLACENTA PRAEVIA [None]
  - PREMATURE BABY [None]
  - SMALL FOR DATES BABY [None]
  - WEIGHT DECREASE NEONATAL [None]
